FAERS Safety Report 10186358 (Version 1)
Quarter: 2014Q2

REPORT INFORMATION
  Report Type: Spontaneous
  Country: US (occurrence: US)
  Receive Date: 20140521
  Receipt Date: 20140521
  Transmission Date: 20141212
  Serious: No
  Sender: FDA-Public Use
  Company Number: US-ASTRAZENECA-2013SE72552

PATIENT
  Sex: 0

DRUGS (2)
  1. PULMICORT [Suspect]
     Route: 055
  2. BROVANA [Suspect]
     Route: 055

REACTIONS (2)
  - Dyspnoea [Unknown]
  - Intentional product misuse [Unknown]
